FAERS Safety Report 17773225 (Version 1)
Quarter: 2020Q2

REPORT INFORMATION
  Report Type: Spontaneous
  Country: KR (occurrence: KR)
  Receive Date: 20200513
  Receipt Date: 20200513
  Transmission Date: 20200714
  Serious: Yes (Other)
  Sender: FDA-Public Use
  Company Number: KR-SUN PHARMACEUTICAL INDUSTRIES LTD-2020R1-246425

PATIENT
  Age: 55 Year
  Sex: Male

DRUGS (1)
  1. TRAMADOL. [Suspect]
     Active Substance: TRAMADOL
     Indication: NASOPHARYNGITIS
     Dosage: UNK, (80-140 MG) DAILY
     Route: 065

REACTIONS (1)
  - Myoclonus [Recovered/Resolved]
